FAERS Safety Report 5301314-3 (Version None)
Quarter: 2007Q1

REPORT INFORMATION
  Report Type: 
  Country: None (occurrence: None)
  Receive Date: 20070201
  Receipt Date: 20061214
  Transmission Date: 20070707
  Serious: No
  Sender: FDA-Public Use
  Company Number: 2006PV026892

PATIENT
  Age: 58 Year
  Sex: Female
  Weight: 115.6672 kg

DRUGS (3)
  1. BYETTA [Suspect]
     Indication: INSULIN RESISTANCE
     Dosage: 5 MCG;BID;SC
     Route: 058
     Dates: start: 20061213, end: 20061214
  2. TOPROL-XL [Concomitant]
  3. TAMBICOR [Concomitant]

REACTIONS (1)
  - HEART RATE INCREASED [None]
